FAERS Safety Report 5131999-6 (Version None)
Quarter: 2006Q4

REPORT INFORMATION
  Report Type: 
  Country: None (occurrence: None)
  Receive Date: 20061017
  Receipt Date: 20061004
  Transmission Date: 20070319
  Serious: Yes (Hospitalization, Other)
  Sender: FDA-Public Use
  Company Number: 2006124595

PATIENT
  Sex: Female

DRUGS (3)
  1. CHANTIX [Suspect]
     Dosage: 2 MG (1 MG, 2 IN 1 SEC)
     Dates: start: 20060101
  2. EFFEXOR [Concomitant]
  3. DRUG USED IN DIABETES [Concomitant]

REACTIONS (1)
  - CONVULSION [None]
